FAERS Safety Report 15985501 (Version 1)
Quarter: 2019Q1

REPORT INFORMATION
  Report Type: Spontaneous
  Country: US (occurrence: US)
  Receive Date: 20190220
  Receipt Date: 20190220
  Transmission Date: 20190418
  Serious: No
  Sender: FDA-Public Use
  Company Number: US-LANTHEUS-LMI-2018-00032

PATIENT
  Age: 63 Year
  Sex: Male
  Weight: 122 kg

DRUGS (2)
  1. OXYGEN. [Concomitant]
     Active Substance: OXYGEN
     Indication: ASTHMA
     Dosage: 6 L/MIN
     Route: 065
  2. DEFINITY [Suspect]
     Active Substance: PERFLUTREN
     Indication: ECHOCARDIOGRAM
     Dosage: 4-6 ML (1.5 ML DEFINITY PREPARED IN 8.5 ML SALINE)
     Route: 040
     Dates: start: 20180117, end: 20180117

REACTIONS (2)
  - Ejection fraction decreased [Not Recovered/Not Resolved]
  - Dyspnoea [Unknown]

NARRATIVE: CASE EVENT DATE: 20180117
